FAERS Safety Report 22869381 (Version 4)
Quarter: 2024Q1

REPORT INFORMATION
  Report Type: Report from Study
  Country: MX (occurrence: MX)
  Receive Date: 20230826
  Receipt Date: 20240312
  Transmission Date: 20240410
  Serious: Yes (Other)
  Sender: FDA-Public Use
  Company Number: MX-002147023-NVSC2023MX184913

PATIENT
  Sex: Male
  Weight: 84 kg

DRUGS (2)
  1. COSENTYX [Suspect]
     Active Substance: SECUKINUMAB
     Indication: Psoriasis
     Dosage: 2 DOSAGE FORM, Q2W, (APPLIED WITH 2 WEEKS FOR 2 MONTHS)
     Route: 058
     Dates: start: 202307, end: 202310
  2. COSENTYX [Suspect]
     Active Substance: SECUKINUMAB
     Dosage: 2 DOSAGE FORM, QW (APPLY ON WEEKS 1,2, 3, 4 AND THEN MONTHLY)
     Route: 065
     Dates: start: 20230808

REACTIONS (8)
  - Leukaemia [Unknown]
  - Pruritus [Unknown]
  - Burning sensation [Unknown]
  - Blood albumin abnormal [Unknown]
  - Haemoglobin decreased [Unknown]
  - Psoriasis [Not Recovered/Not Resolved]
  - Gait disturbance [Unknown]
  - Off label use [Unknown]
